FAERS Safety Report 8552045-8 (Version None)
Quarter: 2012Q3

REPORT INFORMATION
  Report Type: 
  Country: None (occurrence: None)
  Receive Date: 20120731
  Receipt Date: 20120727
  Transmission Date: 20120928
  Serious: Yes (Hospitalization)
  Sender: FDA-Public Use
  Company Number: FR-AMGEN-FRASP2012046958

PATIENT
  Age: 52 Year
  Sex: Male

DRUGS (14)
  1. RAMIPRIL [Concomitant]
  2. AMLODIPINE [Concomitant]
  3. SEREVENT [Concomitant]
  4. ONDANSETRON [Concomitant]
  5. VALACICLOVIR [Concomitant]
  6. ADENURIC [Concomitant]
  7. IMETH [Concomitant]
  8. NEUPOGEN [Suspect]
     Indication: APLASIA
     Dosage: UNK
     Route: 058
     Dates: start: 20120709, end: 20120712
  9. FOLIC ACID [Concomitant]
  10. POTASSIUM CHLORIDE [Concomitant]
  11. CYCLOPHOSPHAMIDE [Concomitant]
  12. NEXIUM [Concomitant]
  13. IRBESARTAN [Concomitant]
  14. ATORVASTATIN [Concomitant]

REACTIONS (2)
  - RASH PAPULAR [None]
  - PRURITUS [None]
